FAERS Safety Report 25753958 (Version 1)
Quarter: 2025Q3

REPORT INFORMATION
  Report Type: Spontaneous
  Country: AU (occurrence: AU)
  Receive Date: 20250903
  Receipt Date: 20250903
  Transmission Date: 20251020
  Serious: Yes (Other)
  Sender: BAYER HEALTHCARE PHARMACEUTICALS INC.
  Company Number: AU-BAYER-2025A111438

PATIENT
  Age: 79 Year
  Sex: Male

DRUGS (2)
  1. NUBEQA [Suspect]
     Active Substance: DAROLUTAMIDE
     Indication: Neoplasm malignant
     Dates: start: 202507, end: 2025
  2. NUBEQA [Suspect]
     Active Substance: DAROLUTAMIDE
     Indication: Neoplasm malignant
     Dates: start: 202508

REACTIONS (2)
  - Arthralgia [Recovering/Resolving]
  - Pain in extremity [Recovering/Resolving]

NARRATIVE: CASE EVENT DATE: 20250801
